FAERS Safety Report 5489432-0 (Version None)
Quarter: 2007Q4

REPORT INFORMATION
  Report Type: 
  Country: None (occurrence: None)
  Receive Date: 20071005
  Receipt Date: 20070618
  Transmission Date: 20080405
  Serious: No
  Sender: FDA-Public Use
  Company Number: PHEH2007US07850

PATIENT
  Sex: Male

DRUGS (2)
  1. TEKTURNA [Suspect]
     Indication: HYPERTENSION
     Dosage: 150MG; 300MG
     Dates: start: 20070510, end: 20070516
  2. TEKTURNA [Suspect]
     Indication: HYPERTENSION
     Dosage: 150MG; 300MG
     Dates: start: 20070516

REACTIONS (1)
  - DRUG INEFFECTIVE [None]
